FAERS Safety Report 24645054 (Version 1)
Quarter: 2024Q4

REPORT INFORMATION
  Report Type: Spontaneous
  Country: CN (occurrence: CN)
  Receive Date: 20241121
  Receipt Date: 20241121
  Transmission Date: 20250115
  Serious: Yes (Other)
  Sender: BEIGENE
  Company Number: CN-BEIGENE-BGN-2024-018394

PATIENT

DRUGS (4)
  1. TISLELIZUMAB [Suspect]
     Active Substance: TISLELIZUMAB
     Indication: Gastric cancer
     Dosage: 200 MILLIGRAM
     Route: 041
     Dates: start: 20241010
  2. OXALIPLATIN [Suspect]
     Active Substance: OXALIPLATIN
     Indication: Gastric cancer
     Dosage: 130 MILLIGRAM
     Route: 041
     Dates: start: 20241010
  3. FLUOROURACIL [Suspect]
     Active Substance: FLUOROURACIL
     Indication: Gastric cancer
     Dosage: 600 MILLIGRAM
     Route: 041
     Dates: start: 20241010
  4. FLUOROURACIL [Suspect]
     Active Substance: FLUOROURACIL
     Dosage: 1800 MILLIGRAM
     Route: 041
     Dates: start: 20241010

REACTIONS (1)
  - Myelosuppression [Recovered/Resolved]

NARRATIVE: CASE EVENT DATE: 20241028
